FAERS Safety Report 5524593-6 (Version None)
Quarter: 2007Q4

REPORT INFORMATION
  Report Type: 
  Country: None (occurrence: None)
  Receive Date: 20071123
  Receipt Date: 20071119
  Transmission Date: 20080405
  Serious: Yes (Hospitalization)
  Sender: FDA-Public Use
  Company Number: NL-BAYER-200716890GDS

PATIENT
  Age: 69 Year
  Sex: Female

DRUGS (2)
  1. NEXAVAR [Suspect]
     Indication: RENAL CELL CARCINOMA STAGE UNSPECIFIED
     Route: 048
     Dates: start: 20071106
  2. ANTIBIOTICS [Concomitant]
     Indication: URINARY TRACT INFECTION
     Route: 042

REACTIONS (7)
  - BLISTER [None]
  - BURNING SENSATION [None]
  - ERYTHEMA [None]
  - PARAESTHESIA [None]
  - PYREXIA [None]
  - RASH GENERALISED [None]
  - URINARY TRACT INFECTION [None]
